FAERS Safety Report 12898994 (Version 2)
Quarter: 2017Q1

REPORT INFORMATION
  Report Type: Report from Study
  Country: US (occurrence: US)
  Receive Date: 20161101
  Receipt Date: 20170301
  Transmission Date: 20170428
  Serious: No
  Sender: FDA-Public Use
  Company Number: PHEH2015US009125

PATIENT
  Age: 40 Year
  Sex: Male

DRUGS (2)
  1. COSENTYX [Suspect]
     Active Substance: SECUKINUMAB
     Indication: PSORIASIS
     Dosage: 300 MG, QW
     Route: 058
     Dates: start: 20150410
  2. COSENTYX [Suspect]
     Active Substance: SECUKINUMAB
     Dosage: 2 DF, UNK
     Route: 058

REACTIONS (3)
  - Incorrect dose administered by device [Unknown]
  - Contusion [Unknown]
  - Device malfunction [Unknown]

NARRATIVE: CASE EVENT DATE: 20150410
